FAERS Safety Report 5193484-5 (Version None)
Quarter: 2006Q4

REPORT INFORMATION
  Report Type: 
  Country: None (occurrence: None)
  Receive Date: 20061228
  Receipt Date: 20060522
  Transmission Date: 20070319
  Serious: No
  Sender: FDA-Public Use
  Company Number: US-GLAXOSMITHKLINE-A0607158A

PATIENT

DRUGS (1)
  1. FLOVENT [Suspect]
     Dates: start: 20050901

REACTIONS (1)
  - PRODUCTIVE COUGH [None]
